FAERS Safety Report 25304236 (Version 1)
Quarter: 2025Q2

REPORT INFORMATION
  Report Type: Report from Study
  Country: US (occurrence: US)
  Receive Date: 20250513
  Receipt Date: 20250513
  Transmission Date: 20250717
  Serious: Yes (Hospitalization, Other)
  Sender: TAKEDA
  Company Number: US-TAKEDA-2024TUS116555

PATIENT
  Sex: Female

DRUGS (2)
  1. FRUQUINTINIB [Suspect]
     Active Substance: FRUQUINTINIB
     Indication: Rectal cancer
  2. FRUQUINTINIB [Suspect]
     Active Substance: FRUQUINTINIB

REACTIONS (7)
  - Abscess limb [Unknown]
  - Neuropathy peripheral [Unknown]
  - Blood urine present [Unknown]
  - Dysphonia [Unknown]
  - Fatigue [Unknown]
  - Decreased appetite [Unknown]
  - Asthenia [Unknown]
